FAERS Safety Report 23847969 (Version 1)
Quarter: 2024Q2

REPORT INFORMATION
  Report Type: Spontaneous
  Country: US (occurrence: None)
  Receive Date: 20240510
  Receipt Date: 20240510
  Transmission Date: 20240716
  Serious: Yes (Hospitalization)
  Sender: FDA-Public Use
  Company Number: None

PATIENT
  Sex: Female

DRUGS (2)
  1. DROXIDOPA [Suspect]
     Active Substance: DROXIDOPA
     Indication: Orthostatic hypotension
     Dosage: 400MG 3 TIMES A DAY ORAL?
     Route: 048
     Dates: start: 202405
  2. NORTHERA [Concomitant]
     Active Substance: DROXIDOPA

REACTIONS (1)
  - Hospitalisation [None]
